FAERS Safety Report 8306643-7 (Version None)
Quarter: 2012Q2

REPORT INFORMATION
  Report Type: 
  Country: None (occurrence: None)
  Receive Date: 20120424
  Receipt Date: 20120416
  Transmission Date: 20120825
  Serious: Yes (Hospitalization, Other)
  Sender: FDA-Public Use
  Company Number: US-BAYER-2012-038117

PATIENT
  Age: 31 Year
  Sex: Female

DRUGS (13)
  1. NASONEX [Concomitant]
  2. CIPROFLOXACIN HCL [Concomitant]
     Indication: PYELONEPHRITIS
     Dosage: UNK
     Dates: start: 20071229
  3. LEVOTHYROXINE SODIUM [Concomitant]
     Dosage: 88 MCG, QD
     Route: 048
     Dates: start: 20040101
  4. AVELOX [Concomitant]
     Dosage: 400 MG, QD
     Dates: start: 20071130, end: 20071209
  5. MUCINEX [Concomitant]
     Dosage: UNK
     Dates: start: 20071121
  6. YAZ [Suspect]
     Indication: ACNE
     Dosage: UNK
     Dates: start: 20031001, end: 20090701
  7. COMPAZINE [Concomitant]
  8. YASMIN [Suspect]
     Indication: ACNE
     Dosage: UNK
     Dates: start: 20031001, end: 20090701
  9. YASMIN [Suspect]
     Indication: PREMENSTRUAL SYNDROME
  10. ZITHROMAX [Concomitant]
     Dosage: UNK
     Dates: start: 20071121
  11. YAZ [Suspect]
     Indication: PREMENSTRUAL SYNDROME
  12. YAZ [Suspect]
     Indication: MOOD ALTERED
  13. PROVENTIL [Concomitant]
     Dosage: UNK UNK, PRN

REACTIONS (3)
  - CHOLECYSTITIS ACUTE [None]
  - CHOLELITHIASIS [None]
  - PAIN [None]
